FAERS Safety Report 7028540-X (Version None)
Quarter: 2010Q3

REPORT INFORMATION
  Report Type: 
  Country: None (occurrence: None)
  Receive Date: 20100920
  Receipt Date: 20100315
  Transmission Date: 20110219
  Serious: Yes (Death, Hospitalization, Other)
  Sender: FDA-Public Use
  Company Number: 2010033802

PATIENT
  Age: 59 Year
  Sex: Female

DRUGS (2)
  1. DILANTIN-125 [Suspect]
     Indication: CONVULSION PROPHYLAXIS
     Dosage: 300 MG, 1X/DAY, ORAL; 200 MG, 1X/DAY, ORAL; 100 MG, 1X/DAY, ORAL
     Route: 048
     Dates: start: 20070101
  2. DILANTIN-125 [Suspect]
     Indication: CONVULSION PROPHYLAXIS
     Dosage: 300 MG, 1X/DAY, ORAL; 200 MG, 1X/DAY, ORAL; 100 MG, 1X/DAY, ORAL
     Route: 048
     Dates: start: 20071201

REACTIONS (1)
  - STEVENS-JOHNSON SYNDROME [None]
